FAERS Safety Report 7116813-1 (Version None)
Quarter: 2010Q4

REPORT INFORMATION
  Report Type: 
  Country: None (occurrence: None)
  Receive Date: 20101122
  Receipt Date: 20101116
  Transmission Date: 20110411
  Serious: Yes (Hospitalization)
  Sender: FDA-Public Use
  Company Number: FR-ABBOTT-10P-056-0686026-00

PATIENT
  Sex: Male

DRUGS (6)
  1. HUMIRA [Suspect]
     Indication: INFLAMMATORY BOWEL DISEASE
     Dates: start: 20100316, end: 20100316
  2. HUMIRA [Suspect]
     Dates: start: 20100330, end: 20100330
  3. HUMIRA [Suspect]
  4. FIVASA [Suspect]
     Indication: INFLAMMATORY BOWEL DISEASE
     Route: 048
     Dates: start: 20100205
  5. IMUREL [Suspect]
     Indication: INFLAMMATORY BOWEL DISEASE
     Route: 048
     Dates: start: 20100205
  6. VALACYCLOVIR HYDROCHLORIDE [Concomitant]
     Indication: HERPES ZOSTER

REACTIONS (3)
  - GASTRIC ULCER [None]
  - HELICOBACTER INFECTION [None]
  - MELAENA [None]
